FAERS Safety Report 12503243 (Version 1)
Quarter: 2016Q2

REPORT INFORMATION
  Report Type: Spontaneous
  Country: US (occurrence: US)
  Receive Date: 20160628
  Receipt Date: 20160628
  Transmission Date: 20160815
  Serious: No
  Sender: FDA-Public Use
  Company Number: US-FERRINGPH-2015FE03580

PATIENT
  Age: 36 Year
  Sex: Female
  Weight: 62.13 kg

DRUGS (3)
  1. GANIRELIX [Concomitant]
     Active Substance: GANIRELIX
  2. MENOPUR [Concomitant]
     Active Substance: FOLLICLE STIMULATING HORMONE BETA POLYPEPTIDE\LUTROPIN ALFA
  3. BRAVELLE [Suspect]
     Active Substance: FOLLITROPIN\UROFOLLITROPIN
     Indication: IN VITRO FERTILISATION
     Dosage: 225 IU, DAILY FOR 12 DAYS
     Route: 058
     Dates: start: 201509, end: 201509

REACTIONS (1)
  - Drug ineffective [Not Recovered/Not Resolved]

NARRATIVE: CASE EVENT DATE: 201509
